FAERS Safety Report 10312600 (Version 1)
Quarter: 2014Q3

REPORT INFORMATION
  Report Type: Spontaneous
  Country: US (occurrence: None)
  Receive Date: 20140717
  Receipt Date: 20140717
  Transmission Date: 20150326
  Serious: Yes (Death)
  Sender: FDA-Public Use
  Company Number: None

PATIENT
  Sex: Female

DRUGS (12)
  1. GABAPENTIN. [Concomitant]
     Active Substance: GABAPENTIN
  2. ENEMA (SODIUM PHOSPHATE, DIBASIC\SODIUM PHOSPHATE, MONOBASIC) [Concomitant]
     Active Substance: SODIUM PHOSPHATE, DIBASIC\SODIUM PHOSPHATE, MONOBASIC
  3. FOSTEUM [Concomitant]
     Active Substance: CHOLECALCIFEROL\GENISTEIN\ZINC GLYCINATE
  4. FENTANYL. [Concomitant]
     Active Substance: FENTANYL
  5. NAPROSYN [Concomitant]
     Active Substance: NAPROXEN
  6. OMEPRAZOLE. [Concomitant]
     Active Substance: OMEPRAZOLE
  7. XTANDI [Suspect]
     Active Substance: ENZALUTAMIDE
     Indication: PROSTATE CANCER
     Route: 048
     Dates: start: 20140324
  8. TAMSULOSIN [Concomitant]
     Active Substance: TAMSULOSIN
  9. FLUOCINONIDE. [Concomitant]
     Active Substance: FLUOCINONIDE
  10. ENSURE PLUS CHOCOLATE LIQ [Concomitant]
  11. MITOMYON [Concomitant]
  12. DOXEPIN [Concomitant]
     Active Substance: DOXEPIN

REACTIONS (1)
  - Death [None]
